FAERS Safety Report 24142679 (Version 2)
Quarter: 2024Q3

REPORT INFORMATION
  Report Type: Spontaneous
  Country: US (occurrence: US)
  Receive Date: 20240726
  Receipt Date: 20240730
  Transmission Date: 20241017
  Serious: Yes (Other)
  Sender: TEVA
  Company Number: US-TEVA-VS-3221876

PATIENT
  Age: 66 Year
  Sex: Female

DRUGS (1)
  1. SUCRALFATE [Suspect]
     Active Substance: SUCRALFATE
     Indication: Product used for unknown indication
     Dosage: 4 TABLETS PER DAY
     Route: 065

REACTIONS (5)
  - Respiratory arrest [Unknown]
  - Product label issue [Unknown]
  - Choking [Unknown]
  - Foreign body in throat [Unknown]
  - Dysphagia [Unknown]
